FAERS Safety Report 8434298-X (Version None)
Quarter: 2012Q2

REPORT INFORMATION
  Report Type: 
  Country: None (occurrence: None)
  Receive Date: 20120613
  Receipt Date: 20120606
  Transmission Date: 20120825
  Serious: Yes (Other)
  Sender: FDA-Public Use
  Company Number: DE-ABBOTT-12P-062-0944429-00

PATIENT
  Sex: Male

DRUGS (1)
  1. TESTOSTERONE [Suspect]
     Indication: ANDROGEN DEFICIENCY
     Route: 062
     Dates: start: 20110901

REACTIONS (1)
  - CONDITION AGGRAVATED [None]
